FAERS Safety Report 6415858-4 (Version None)
Quarter: 2009Q4

REPORT INFORMATION
  Report Type: 
  Country: None (occurrence: None)
  Receive Date: 20091022
  Receipt Date: 20091005
  Transmission Date: 20100525
  Serious: Yes (Hospitalization)
  Sender: FDA-Public Use
  Company Number: B0597410A

PATIENT
  Age: 16 Year
  Sex: Female
  Weight: 61.8706 kg

DRUGS (11)
  1. DIGOXIN [Suspect]
  2. SUXAMETHONIUM      (FORMULATION UNKNOWN) (GENERIC) [Suspect]
  3. FUROSEMIDE [Suspect]
  4. LIGNOCAINE HYDROCHLORIDE  (LIDOCAINE HCL) [Suspect]
  5. EPHEDRINE SUL CAP [Suspect]
  6. RINGER'S INJECTION        (RINGER'S INJECTION) [Suspect]
  7. OXYGEN            (OXYGEN) [Suspect]
  8. FENTANYL-100 [Suspect]
  9. PHENYLEPHRINE HYDROCHLORIDE                  (PHENYLEPHRINE HCL) [Suspect]
  10. THIOPENTONE SODIUM          (THIOPENTAL SODIUM) [Suspect]
  11. DIURETIC           (DIURETIC) [Suspect]

REACTIONS (6)
  - ANAESTHETIC COMPLICATION [None]
  - BLOOD PRESSURE DECREASED [None]
  - CAESAREAN SECTION [None]
  - DRUG EXPOSURE DURING PREGNANCY [None]
  - HEART RATE INCREASED [None]
  - HYPOVOLAEMIA [None]
